FAERS Safety Report 10094118 (Version 2)
Quarter: 2014Q2

REPORT INFORMATION
  Report Type: Spontaneous
  Country: US (occurrence: US)
  Receive Date: 20140422
  Receipt Date: 20140422
  Transmission Date: 20141212
  Serious: Yes (Other)
  Sender: FDA-Public Use
  Company Number: US-ACCORD-023078

PATIENT
  Age: 56 Year
  Sex: Female

DRUGS (1)
  1. METHOTREXATE [Suspect]
     Indication: SERONEGATIVE ARTHRITIS

REACTIONS (5)
  - Skin ulcer [Recovered/Resolved]
  - Mouth ulceration [Recovered/Resolved]
  - Pancytopenia [Recovered/Resolved]
  - Folate deficiency [Recovered/Resolved]
  - Oesophagitis [Recovered/Resolved]
